FAERS Safety Report 9340065 (Version 2)
Quarter: 2013Q3

REPORT INFORMATION
  Report Type: Spontaneous
  Country: US (occurrence: US)
  Receive Date: 20130610
  Receipt Date: 20130910
  Transmission Date: 20140515
  Serious: No
  Sender: FDA-Public Use
  Company Number: US-ASTELLAS-2013US005315

PATIENT
  Age: 89 Year
  Sex: Male

DRUGS (2)
  1. XTANDI [Suspect]
     Indication: ILL-DEFINED DISORDER
     Dosage: 160 MG, UID/QD
     Route: 048
     Dates: start: 20130417
  2. XTANDI [Suspect]
     Dosage: 80 MG, UNKNOWN/D
     Route: 048
     Dates: start: 20130520

REACTIONS (6)
  - Abdominal pain upper [Recovering/Resolving]
  - Decreased appetite [Not Recovered/Not Resolved]
  - Dizziness [Unknown]
  - Diarrhoea [Recovering/Resolving]
  - Back pain [Recovered/Resolved]
  - Weight decreased [Not Recovered/Not Resolved]
